FAERS Safety Report 8808997 (Version 1)
Quarter: 2012Q4

REPORT INFORMATION
  Report Type: Spontaneous
  Country: US (occurrence: None)
  Receive Date: 20120920
  Receipt Date: 20120920
  Transmission Date: 20130627
  Serious: No
  Sender: FDA-Public Use
  Company Number: None

PATIENT
  Age: 54 Year
  Sex: Male
  Weight: 58.5 kg

DRUGS (1)
  1. EMTRICITABINE/RILPIVIRINE/TENOFOVIR [Suspect]
     Indication: HIV INFECTION
     Dosage: 200/25/300 MG EVERY DAY PO
     Route: 048
     Dates: start: 20120206, end: 20120306

REACTIONS (4)
  - Abdominal pain [None]
  - Abdominal discomfort [None]
  - Diarrhoea [None]
  - Erectile dysfunction [None]
